FAERS Safety Report 8275278-7 (Version None)
Quarter: 2012Q2

REPORT INFORMATION
  Report Type: 
  Country: None (occurrence: None)
  Receive Date: 20120411
  Receipt Date: 20120405
  Transmission Date: 20120825
  Serious: Yes (Other)
  Sender: FDA-Public Use
  Company Number: US-PFIZER INC-2012069004

PATIENT
  Sex: Female
  Weight: 50.794 kg

DRUGS (3)
  1. CHANTIX [Suspect]
     Dosage: 1 MG, 2X/DAY
     Route: 048
     Dates: start: 20120301, end: 20120315
  2. CHANTIX [Suspect]
     Indication: SMOKING CESSATION THERAPY
     Dosage: 0.5 MG, 1X/DAY
     Route: 048
     Dates: start: 20120307, end: 20120301
  3. CHANTIX [Suspect]
     Dosage: 0.5 MG, 2X/DAY
     Route: 048
     Dates: start: 20120301, end: 20120301

REACTIONS (11)
  - SINUS BRADYCARDIA [None]
  - CHEST PAIN [None]
  - TOBACCO ABUSE [None]
  - SLEEP DISORDER [None]
  - MUSCLE CONTRACTIONS INVOLUNTARY [None]
  - BONE PAIN [None]
  - MUSCULOSKELETAL CHEST PAIN [None]
  - LIPOMA [None]
  - MUSCULOSKELETAL PAIN [None]
  - ANXIETY [None]
  - DERMAL CYST [None]
